FAERS Safety Report 8263409 (Version 4)
Quarter: 2013Q3

REPORT INFORMATION
  Report Type: Report from Study
  Country: DE (occurrence: DE)
  Receive Date: 20111125
  Receipt Date: 20130710
  Transmission Date: 20140515
  Serious: Yes (Hospitalization, Other)
  Sender: FDA-Public Use
  Company Number: PHHO2011DE018908

PATIENT
  Age: 54 Year
  Sex: Female
  Weight: 66 kg

DRUGS (5)
  1. KRP203 [Suspect]
     Indication: CUTANEOUS LUPUS ERYTHEMATOSUS
     Dosage: 1.2 MG, QD
     Route: 048
     Dates: start: 20111028, end: 20111113
  2. PREDNISOLONE [Suspect]
     Indication: SYSTEMIC LUPUS ERYTHEMATOSUS
     Dosage: 10 MG, QD
     Dates: start: 201109, end: 20111113
  3. PANTOZOL [Concomitant]
     Dosage: 20 MG, QD
     Route: 048
     Dates: start: 201107
  4. RESOCHIN [Concomitant]
     Indication: SYSTEMIC LUPUS ERYTHEMATOSUS
     Dosage: 250 MG, QD
     Dates: start: 201105, end: 20111113
  5. BETNESOL-V [Concomitant]
     Indication: SYSTEMIC LUPUS ERYTHEMATOSUS
     Dosage: TWICE DAILY
     Dates: end: 201111

REACTIONS (2)
  - Lymphopenia [Recovered/Resolved]
  - Disease progression [Recovered/Resolved]
